FAERS Safety Report 9172977 (Version 1)
Quarter: 2013Q1

REPORT INFORMATION
  Report Type: Spontaneous
  Country: US (occurrence: None)
  Receive Date: 20130319
  Receipt Date: 20130319
  Transmission Date: 20140127
  Serious: Yes (Death, Life-Threatening, Hospitalization)
  Sender: FDA-Public Use
  Company Number: None

PATIENT
  Age: 77 Year
  Sex: Female

DRUGS (10)
  1. FEBUXOSTAT [Suspect]
  2. IBUPROFEN [Suspect]
  3. ALLOPURINOL [Suspect]
  4. AMLODIPINE [Suspect]
  5. LABETALOL [Concomitant]
  6. ASPIRIN [Concomitant]
  7. LISINOPRIL [Concomitant]
  8. ZEMPLAR [Concomitant]
  9. ATOVASTATIN [Concomitant]
  10. FUROSEMIDE [Concomitant]

REACTIONS (2)
  - Toxic epidermal necrolysis [None]
  - Renal failure acute [None]
